FAERS Safety Report 13502579 (Version 5)
Quarter: 2017Q2

REPORT INFORMATION
  Report Type: Report from Study
  Country: GB (occurrence: GB)
  Receive Date: 20170502
  Receipt Date: 20170608
  Transmission Date: 20170830
  Serious: Yes (Hospitalization)
  Sender: FDA-Public Use
  Company Number: GB-EISAI MEDICAL RESEARCH-EC-2017-027112

PATIENT
  Age: 25 Year
  Sex: Male
  Weight: 98.2 kg

DRUGS (3)
  1. LACOSAMIDE. [Concomitant]
     Active Substance: LACOSAMIDE
  2. FYCOMPA [Suspect]
     Active Substance: PERAMPANEL
     Indication: EPILEPSY
     Route: 048
     Dates: start: 20161025, end: 20161109
  3. CLOBAZAM [Concomitant]
     Active Substance: CLOBAZAM

REACTIONS (1)
  - Generalised tonic-clonic seizure [Recovered/Resolved]

NARRATIVE: CASE EVENT DATE: 20161109
